FAERS Safety Report 18147578 (Version 1)
Quarter: 2020Q3

REPORT INFORMATION
  Report Type: Spontaneous
  Country: SE (occurrence: SE)
  Receive Date: 20200814
  Receipt Date: 20200814
  Transmission Date: 20201103
  Serious: Yes (Hospitalization)
  Sender: FDA-Public Use
  Company Number: SE-TEVA-2020-SE-1813546

PATIENT
  Age: 67 Year
  Sex: Male
  Weight: 97 kg

DRUGS (2)
  1. DOXYCYCLINE (ANHYDROUS) [Suspect]
     Active Substance: DOXYCYCLINE
     Indication: PROSTATITIS
     Dates: start: 20200630
  2. TRAMADOL. [Concomitant]
     Active Substance: TRAMADOL
     Dates: start: 20020405

REACTIONS (2)
  - Headache [Recovered/Resolved]
  - Dizziness [Recovered/Resolved]

NARRATIVE: CASE EVENT DATE: 202007
